FAERS Safety Report 18327472 (Version 1)
Quarter: 2020Q3

REPORT INFORMATION
  Report Type: Spontaneous
  Country: US (occurrence: US)
  Receive Date: 20200929
  Receipt Date: 20200929
  Transmission Date: 20201103
  Serious: Yes (Other)
  Sender: FDA-Public Use
  Company Number: US-JNJFOC-20200951766

PATIENT

DRUGS (11)
  1. OXYGEN. [Concomitant]
     Active Substance: OXYGEN
  2. ENOXAPARIN [Concomitant]
     Active Substance: ENOXAPARIN
  3. EPOPROSTENOL SODIUM. [Suspect]
     Active Substance: EPOPROSTENOL SODIUM
     Indication: PULMONARY HYPERTENSION
     Route: 064
  4. BUPIVACAINE. [Concomitant]
     Active Substance: BUPIVACAINE
  5. SILDENAFIL. [Concomitant]
     Active Substance: SILDENAFIL
     Route: 064
  6. EPOPROSTENOL SODIUM. [Suspect]
     Active Substance: EPOPROSTENOL SODIUM
     Route: 064
  7. FENTANYL. [Concomitant]
     Active Substance: FENTANYL
  8. ENOXAPARIN [Concomitant]
     Active Substance: ENOXAPARIN
  9. HEPARIN [Concomitant]
     Active Substance: HEPARIN SODIUM
     Route: 064
  10. BETAMETHASONE. [Concomitant]
     Active Substance: BETAMETHASONE
  11. ROPIVACAINE. [Concomitant]
     Active Substance: ROPIVACAINE HYDROCHLORIDE

REACTIONS (2)
  - Foetal exposure during pregnancy [Recovered/Resolved]
  - Bradycardia foetal [Recovered/Resolved]
